FAERS Safety Report 15275764 (Version 1)
Quarter: 2018Q3

REPORT INFORMATION
  Report Type: Spontaneous
  Country: US (occurrence: US)
  Receive Date: 20180727
  Receipt Date: 20180727
  Transmission Date: 20181010
  Serious: No
  Sender: FDA-Public Use
  Company Number: None

PATIENT
  Age: 61 Year
  Sex: Female

DRUGS (9)
  1. SULFAMETHOXAZOLE/TRIMETHOPRIM [Suspect]
     Active Substance: SULFAMETHOXAZOLE\TRIMETHOPRIM
     Indication: INFECTION
     Dosage: 800/160 MG; TWO TIMES DAILY PO?
     Route: 048
     Dates: start: 20180517, end: 20180614
  2. SIMVASTATIN. [Concomitant]
     Active Substance: SIMVASTATIN
  3. CIPROFLOXACIN. [Concomitant]
     Active Substance: CIPROFLOXACIN
  4. RISEDRONATE [Concomitant]
     Active Substance: RISEDRONATE SODIUM
  5. BACLOMETHASONE [Concomitant]
  6. FLUCONAZOLE. [Concomitant]
     Active Substance: FLUCONAZOLE
  7. MONTELUKAST [Concomitant]
     Active Substance: MONTELUKAST SODIUM
  8. RANITIDINE. [Concomitant]
     Active Substance: RANITIDINE
  9. FLUTICASONE. [Concomitant]
     Active Substance: FLUTICASONE

REACTIONS (9)
  - Rash erythematous [None]
  - Swelling face [None]
  - Eye swelling [None]
  - Drug reaction with eosinophilia and systemic symptoms [None]
  - Lichenoid keratosis [None]
  - Peripheral swelling [None]
  - Syncope [None]
  - Photosensitivity reaction [None]
  - Eczema [None]

NARRATIVE: CASE EVENT DATE: 20180620
